FAERS Safety Report 17813280 (Version 2)
Quarter: 2020Q2

REPORT INFORMATION
  Report Type: Spontaneous
  Country: FR (occurrence: FR)
  Receive Date: 20200521
  Receipt Date: 20200618
  Transmission Date: 20200714
  Serious: Yes (Hospitalization)
  Sender: FDA-Public Use
  Company Number: NVSC2020FR137396

PATIENT
  Age: 60 Year
  Sex: Male
  Weight: 83 kg

DRUGS (3)
  1. PREDNISONE. [Suspect]
     Active Substance: PREDNISONE
     Indication: FASCIITIS
     Dosage: 10 MG, QD
     Route: 048
     Dates: start: 20181224
  2. RAPAMUNE [Interacting]
     Active Substance: SIROLIMUS
     Indication: FASCIITIS
     Dosage: 4 MG, QD
     Route: 048
     Dates: start: 20191226
  3. AMIODARONE HYDROCHLORIDE. [Interacting]
     Active Substance: AMIODARONE HYDROCHLORIDE
     Indication: ATRIAL FIBRILLATION
     Dosage: 200 MG, QD
     Route: 048
     Dates: start: 20200115

REACTIONS (3)
  - Dyslipidaemia [Not Recovered/Not Resolved]
  - Diabetes mellitus [Recovering/Resolving]
  - Hypertension [Recovering/Resolving]

NARRATIVE: CASE EVENT DATE: 20200115
